FAERS Safety Report 19905811 (Version 1)
Quarter: 2021Q3

REPORT INFORMATION
  Report Type: Spontaneous
  Country: US (occurrence: US)
  Receive Date: 20210930
  Receipt Date: 20210930
  Transmission Date: 20211014
  Serious: Yes (Other)
  Sender: FDA-Public Use
  Company Number: None

PATIENT
  Age: 42 Year
  Sex: Male
  Weight: 112 kg

DRUGS (10)
  1. OLUMIANT [Suspect]
     Active Substance: BARICITINIB
     Dates: start: 20210923, end: 20210928
  2. LOVENOX [Concomitant]
     Active Substance: ENOXAPARIN SODIUM
  3. TRAZODONE [Concomitant]
     Active Substance: TRAZODONE HYDROCHLORIDE
  4. CEFTRIAXONE. [Concomitant]
     Active Substance: CEFTRIAXONE
  5. NICOTINE. [Concomitant]
     Active Substance: NICOTINE
  6. DEXAMETHASONE. [Concomitant]
     Active Substance: DEXAMETHASONE
  7. MELATONIN [Concomitant]
     Active Substance: MELATONIN
  8. LIOTHYRONINE [Concomitant]
     Active Substance: LIOTHYRONINE
  9. IVERMECTIN. [Concomitant]
     Active Substance: IVERMECTIN
     Dates: start: 20210920, end: 20210923
  10. VALACYCLOVIR [Concomitant]
     Active Substance: VALACYCLOVIR HYDROCHLORIDE

REACTIONS (1)
  - Pulmonary embolism [None]

NARRATIVE: CASE EVENT DATE: 20210928
